FAERS Safety Report 9374836 (Version 2)
Quarter: 2013Q3

REPORT INFORMATION
  Report Type: Spontaneous
  Country: FR (occurrence: FR)
  Receive Date: 20130628
  Receipt Date: 20130805
  Transmission Date: 20140515
  Serious: Yes (Life-Threatening)
  Sender: FDA-Public Use
  Company Number: FR-SANOFI-AVENTIS-2013SA062029

PATIENT
  Age: 66 Year
  Sex: Male

DRUGS (7)
  1. LASILIX [Suspect]
     Indication: PRODUCT USED FOR UNKNOWN INDICATION
     Route: 048
     Dates: start: 2013
  2. KARDEGIC [Suspect]
     Indication: PRODUCT USED FOR UNKNOWN INDICATION
     Dosage: LONG STANDING TREATMENT
     Route: 048
  3. GLUCOPHAGE [Suspect]
     Indication: DIABETES MELLITUS
     Dosage: STRENGTH: 1000 MG?LONG STANDING TREATMENT DOSE:1 UNIT(S)
     Route: 048
     Dates: end: 20130605
  4. PRAXILENE [Suspect]
     Indication: PRODUCT USED FOR UNKNOWN INDICATION
     Dosage: LONG STANDING TREATMENT
     Route: 048
     Dates: end: 20130605
  5. FLUDEX [Suspect]
     Indication: PRODUCT USED FOR UNKNOWN INDICATION
     Dosage: LONG STANDING TREATMENT
     Route: 048
  6. INEGY [Suspect]
     Indication: DYSLIPIDAEMIA
     Dosage: LONG STANDING TREATMENT DOSE:1 UNIT(S)
     Route: 048
  7. RILMENIDINE [Suspect]
     Indication: PRODUCT USED FOR UNKNOWN INDICATION
     Dosage: DOSE:2 UNIT(S)
     Route: 048
     Dates: start: 201304

REACTIONS (4)
  - Renal failure acute [Recovering/Resolving]
  - Blood creatinine increased [Recovering/Resolving]
  - Lactic acidosis [Recovered/Resolved]
  - Blood lactic acid increased [Recovered/Resolved]
